FAERS Safety Report 7903749-9 (Version None)
Quarter: 2011Q4

REPORT INFORMATION
  Report Type: 
  Country: None (occurrence: None)
  Receive Date: 20111109
  Receipt Date: 20111031
  Transmission Date: 20120403
  Serious: Yes (Other)
  Sender: FDA-Public Use
  Company Number: PHHY2011IN96920

PATIENT
  Age: 19 Year
  Sex: Male

DRUGS (1)
  1. DICLOFENAC SODIUM [Suspect]
     Dosage: 6 DF, UNK

REACTIONS (3)
  - DUODENAL STENOSIS [None]
  - OBSTRUCTION GASTRIC [None]
  - VOMITING [None]
